FAERS Safety Report 7802304-9 (Version None)
Quarter: 2011Q4

REPORT INFORMATION
  Report Type: 
  Country: None (occurrence: None)
  Receive Date: 20111007
  Receipt Date: 20110929
  Transmission Date: 20120403
  Serious: Yes (Other)
  Sender: FDA-Public Use
  Company Number: US-PURDUE-USA-2011-0075488

PATIENT
  Sex: Female

DRUGS (3)
  1. ANTIBIOTICS [Concomitant]
     Indication: PRODUCT USED FOR UNKNOWN INDICATION
     Dosage: UNK
     Dates: start: 20110901
  2. PREDNISONE [Concomitant]
     Indication: PRODUCT USED FOR UNKNOWN INDICATION
     Dosage: UNK
     Dates: start: 20110901
  3. BUTRANS [Suspect]
     Indication: PAIN
     Dosage: 5 MCG, Q1H
     Route: 062
     Dates: end: 20110927

REACTIONS (6)
  - PNEUMONIA [None]
  - APPLICATION SITE BURN [None]
  - APPLICATION SITE SCAR [None]
  - APPLICATION SITE PRURITUS [None]
  - APPLICATION SITE ERYTHEMA [None]
  - DRUG ADMINISTERED AT INAPPROPRIATE SITE [None]
